FAERS Safety Report 6241365-8 (Version None)
Quarter: 2009Q2

REPORT INFORMATION
  Report Type: 
  Country: None (occurrence: None)
  Receive Date: 20090617
  Receipt Date: 20071227
  Transmission Date: 20091009
  Serious: No
  Sender: FDA-Public Use
  Company Number: 270610

PATIENT
  Age: 55 Year
  Sex: Female

DRUGS (1)
  1. LEVEMIR [Suspect]
     Indication: TYPE 2 DIABETES MELLITUS
     Dosage: 20 LU, BID, SUBCUTANEOUS
     Route: 058
     Dates: start: 20071213

REACTIONS (3)
  - CHEST DISCOMFORT [None]
  - PRURITUS [None]
  - WHEEZING [None]
